FAERS Safety Report 10460184 (Version 2)
Quarter: 2014Q4

REPORT INFORMATION
  Report Type: Spontaneous
  Country: US (occurrence: US)
  Receive Date: 20140917
  Receipt Date: 20141022
  Transmission Date: 20150528
  Serious: No
  Sender: FDA-Public Use
  Company Number: US-009507513-1409USA004818

PATIENT
  Sex: Male

DRUGS (3)
  1. ASMANEX [Suspect]
     Active Substance: MOMETASONE FUROATE
     Indication: ASTHMA
     Dosage: UNK, , WHEN NEEDED
     Route: 055
     Dates: start: 201409
  2. ASMANEX [Suspect]
     Active Substance: MOMETASONE FUROATE
     Indication: HYPERSENSITIVITY
     Dosage: UNK, WHEN NEEDED
     Route: 055
     Dates: start: 2014, end: 2014
  3. VERAMYST [Concomitant]
     Active Substance: FLUTICASONE FUROATE

REACTIONS (4)
  - Drug dose omission [Unknown]
  - Seasonal allergy [Not Recovered/Not Resolved]
  - Product container issue [Unknown]
  - Drug administration error [Unknown]

NARRATIVE: CASE EVENT DATE: 2014
